FAERS Safety Report 11312153 (Version 1)
Quarter: 2015Q3

REPORT INFORMATION
  Report Type: Spontaneous
  Country: TR (occurrence: TR)
  Receive Date: 20150727
  Receipt Date: 20150727
  Transmission Date: 20151125
  Serious: No
  Sender: FDA-Public Use
  Company Number: TR-SA-2015SA103258

PATIENT
  Sex: Female
  Weight: 80 kg

DRUGS (1)
  1. ARAVA [Suspect]
     Active Substance: LEFLUNOMIDE
     Indication: EXPOSURE DURING PREGNANCY
     Route: 048

REACTIONS (1)
  - Exposure during pregnancy [Unknown]
